FAERS Safety Report 19947220 (Version 1)
Quarter: 2021Q4

REPORT INFORMATION
  Report Type: Spontaneous
  Country: CN (occurrence: CN)
  Receive Date: 20211012
  Receipt Date: 20211012
  Transmission Date: 20220303
  Serious: Yes (Other)
  Sender: FDA-Public Use
  Company Number: CN-ABBVIE-21K-035-4115530-00

PATIENT
  Age: 20 Year
  Sex: Male
  Weight: 79 kg

DRUGS (3)
  1. VALPROATE SODIUM [Suspect]
     Active Substance: VALPROATE SODIUM
     Indication: Schizophrenia
     Dosage: 3 MONTHS 20 DAYS
     Route: 048
     Dates: start: 20180718, end: 20181106
  2. ESTAZOLAM [Suspect]
     Active Substance: ESTAZOLAM
     Indication: Schizophrenia
     Dosage: 1 MONTH 5 DAYS
     Route: 048
     Dates: start: 20180718, end: 20180822
  3. INVEGA [Suspect]
     Active Substance: PALIPERIDONE
     Indication: Schizophrenia
     Route: 048
     Dates: start: 20180718, end: 20180815

REACTIONS (3)
  - Somnolence [Recovering/Resolving]
  - Platelet count decreased [Recovering/Resolving]
  - Extrapyramidal disorder [Recovering/Resolving]
